FAERS Safety Report 14195123 (Version 1)
Quarter: 2017Q4

REPORT INFORMATION
  Report Type: Spontaneous
  Country: US (occurrence: None)
  Receive Date: 20171115
  Receipt Date: 20171115
  Transmission Date: 20180321
  Serious: No
  Sender: FDA-Public Use
  Company Number: None

PATIENT
  Age: 60 Year
  Sex: Female

DRUGS (1)
  1. AMPYRA [Suspect]
     Active Substance: DALFAMPRIDINE
     Indication: MULTIPLE SCLEROSIS
     Route: 048
     Dates: start: 20120214, end: 20170612

REACTIONS (6)
  - Abdominal pain lower [None]
  - Urge incontinence [None]
  - Nausea [None]
  - Cystitis [None]
  - Hypertonic bladder [None]
  - Constipation [None]

NARRATIVE: CASE EVENT DATE: 20170505
